FAERS Safety Report 5277787-1 (Version None)
Quarter: 2007Q1

REPORT INFORMATION
  Report Type: 
  Country: None (occurrence: None)
  Receive Date: 20070327
  Receipt Date: 20070313
  Transmission Date: 20070707
  Serious: Yes (Other)
  Sender: FDA-Public Use
  Company Number: US-ELI_LILLY_AND_COMPANY-US200703002805

PATIENT
  Age: 36 Year
  Sex: Female

DRUGS (1)
  1. CYMBALTA [Suspect]
     Dosage: 30 MG, UNK
     Dates: start: 20070101, end: 20070101

REACTIONS (8)
  - ABNORMAL BEHAVIOUR [None]
  - BRAIN STEM SYNDROME [None]
  - CEREBROVASCULAR ACCIDENT [None]
  - CONVULSION [None]
  - DYSKINESIA [None]
  - HYPERHIDROSIS [None]
  - HYPOAESTHESIA FACIAL [None]
  - SPEECH DISORDER [None]
